FAERS Safety Report 18120018 (Version 1)
Quarter: 2020Q3

REPORT INFORMATION
  Report Type: Spontaneous
  Country: JP (occurrence: JP)
  Receive Date: 20200806
  Receipt Date: 20200806
  Transmission Date: 20201103
  Serious: Yes (Hospitalization, Other)
  Sender: FDA-Public Use
  Company Number: JP-JNJFOC-20200536170

PATIENT
  Age: 64 Year
  Sex: Female

DRUGS (6)
  1. TRABECTEDIN [Suspect]
     Active Substance: TRABECTEDIN
     Route: 041
     Dates: start: 20181107
  2. FAMOTIDINE. [Concomitant]
     Active Substance: FAMOTIDINE
     Route: 065
  3. CEFAMEZIN                          /00288502/ [Concomitant]
     Active Substance: CEFAZOLIN
     Indication: NEUTROPHIL COUNT DECREASED
     Route: 065
  4. TRABECTEDIN [Suspect]
     Active Substance: TRABECTEDIN
     Indication: EXTRASKELETAL MYXOID CHONDROSARCOMA
     Dosage: MG/BODY
     Route: 041
     Dates: start: 20181015
  5. URSO [Concomitant]
     Active Substance: URSODIOL
     Route: 048
  6. DL?METHIONINE W/GLYCINE/GLYCYRRHIZIC ACID [Concomitant]
     Route: 048

REACTIONS (4)
  - Colitis ischaemic [Unknown]
  - Rhabdomyolysis [Recovering/Resolving]
  - Neutrophil count decreased [Unknown]
  - Hepatic enzyme increased [Recovering/Resolving]

NARRATIVE: CASE EVENT DATE: 20181017
